FAERS Safety Report 4837363-9 (Version None)
Quarter: 2005Q4

REPORT INFORMATION
  Report Type: 
  Country: None (occurrence: None)
  Receive Date: 20051122
  Receipt Date: 20051109
  Transmission Date: 20060501
  Serious: Yes (Life-Threatening, Hospitalization, Disabling)
  Sender: FDA-Public Use
  Company Number: 2005153103

PATIENT
  Age: 49 Year
  Sex: Male
  Weight: 100 kg

DRUGS (2)
  1. RELPAX [Suspect]
     Indication: MIGRAINE
     Dosage: 40 MG (40 MG, AS NEEDED), ORAL
     Route: 048
     Dates: start: 20030101, end: 20050101
  2. AVAMIGRAN (AMINOPHENAZONE, CAFFEINE, CAMYLOFIN HYDROCHLORIDE, ERGOTAMI [Suspect]
     Indication: MIGRAINE
     Dates: end: 20050101

REACTIONS (3)
  - CEREBRAL ISCHAEMIA [None]
  - MYOCARDIAL ISCHAEMIA [None]
  - PARESIS [None]
